FAERS Safety Report 9125910 (Version 1)
Quarter: 2013Q1

REPORT INFORMATION
  Report Type: Spontaneous
  Country: SE (occurrence: SE)
  Receive Date: 20130117
  Receipt Date: 20130117
  Transmission Date: 20140127
  Serious: Yes (Hospitalization, Other)
  Sender: FDA-Public Use
  Company Number: SE-PFIZER INC-2013018053

PATIENT
  Age: 29 Year
  Sex: Female

DRUGS (4)
  1. LYRICA [Suspect]
     Dosage: 450 MG, DAILY
     Route: 048
     Dates: start: 200907, end: 20121001
  2. TRAMADOL [Concomitant]
     Dosage: UNK
  3. SOBRIL [Concomitant]
     Dosage: UNK
  4. VENLAFAXINE [Concomitant]
     Dosage: UNK

REACTIONS (3)
  - Anxiety [Recovered/Resolved]
  - Convulsion [Recovered/Resolved]
  - Paraesthesia [Recovered/Resolved]
